FAERS Safety Report 18683904 (Version 1)
Quarter: 2020Q4

REPORT INFORMATION
  Report Type: Report from Study
  Country: BR (occurrence: BR)
  Receive Date: 20201230
  Receipt Date: 20201230
  Transmission Date: 20210114
  Serious: Yes (Other)
  Sender: FDA-Public Use
  Company Number: BR-JNJFOC-20201243922

PATIENT
  Age: 51 Year
  Sex: Male

DRUGS (1)
  1. REMICADE [Suspect]
     Active Substance: INFLIXIMAB
     Indication: RHEUMATOID ARTHRITIS
     Dosage: THE PATIENT TOOK 5 AMPOULES AT A  SINGLE DOSE AND UNDERWENT AROUND 8 INFUSIONS.
     Route: 042
     Dates: start: 201903

REACTIONS (4)
  - Psoriasis [Unknown]
  - COVID-19 [Unknown]
  - Product storage error [Unknown]
  - Measles [Not Recovered/Not Resolved]

NARRATIVE: CASE EVENT DATE: 202009
